FAERS Safety Report 19382315 (Version 1)
Quarter: 2021Q2

REPORT INFORMATION
  Report Type: Spontaneous
  Country: US (occurrence: US)
  Receive Date: 20210607
  Receipt Date: 20210607
  Transmission Date: 20210717
  Serious: Yes (Life-Threatening, Hospitalization)
  Sender: FDA-Public Use
  Company Number: US-ENDO PHARMACEUTICALS INC-2021-009013

PATIENT
  Age: 27 Year
  Sex: Male

DRUGS (2)
  1. BACLOFEN. [Suspect]
     Active Substance: BACLOFEN
     Indication: PRODUCT USED FOR UNKNOWN INDICATION
     Dosage: UNK UNKNOWN, UNKNOWN (OVERDOSE AMOUNT NOT SPECIFIED)
     Route: 048
  2. BACLOFEN. [Suspect]
     Active Substance: BACLOFEN
     Dosage: UNK UNKNOWN, UNKNOWN (BACLOFEN RE?STARTED; DOSAGE NOT SPECIFIED)
     Route: 065

REACTIONS (2)
  - Intentional overdose [Recovered/Resolved]
  - Malignant catatonia [Recovering/Resolving]
